FAERS Safety Report 7468262-4 (Version None)
Quarter: 2011Q2

REPORT INFORMATION
  Report Type: 
  Country: None (occurrence: None)
  Receive Date: 20110509
  Receipt Date: 20100729
  Transmission Date: 20111010
  Serious: Yes (Other)
  Sender: FDA-Public Use
  Company Number: PHHY2010BR49649

PATIENT
  Sex: Female

DRUGS (2)
  1. DIOVAN [Suspect]
     Dosage: 160 MG VALS AND 5 MG AMLO
     Route: 048
  2. RASILEZ (ALISKIREN) [Concomitant]
     Dosage: 150 MG, BID
     Route: 048

REACTIONS (6)
  - CEREBRAL ISCHAEMIA [None]
  - DRUG INEFFECTIVE [None]
  - CEREBROVASCULAR ACCIDENT [None]
  - GENERAL PHYSICAL CONDITION ABNORMAL [None]
  - BLOOD PRESSURE FLUCTUATION [None]
  - DIABETES MELLITUS [None]
